FAERS Safety Report 15612384 (Version 2)
Quarter: 2019Q2

REPORT INFORMATION
  Report Type: Report from Study
  Country: IL (occurrence: IL)
  Receive Date: 20181113
  Receipt Date: 20190527
  Transmission Date: 20190711
  Serious: Yes (Other)
  Sender: FDA-Public Use
  Company Number: IL-PFIZER INC-2018456737

PATIENT
  Age: 6 Month
  Sex: Male

DRUGS (1)
  1. KETAMINE HCL [Suspect]
     Active Substance: KETAMINE HYDROCHLORIDE
     Indication: SEDATION
     Dosage: UNK (MEDIAN DOSE OF 2 MG/KG (IQR 2-4 MG/KG)

REACTIONS (1)
  - Oxygen saturation decreased [Recovered/Resolved]
